FAERS Safety Report 6871583-7 (Version None)
Quarter: 2010Q3

REPORT INFORMATION
  Report Type: 
  Country: None (occurrence: None)
  Receive Date: 20100723
  Receipt Date: 20100713
  Transmission Date: 20110219
  Serious: Yes (Other)
  Sender: FDA-Public Use
  Company Number: US-PFIZER INC-2010088072

PATIENT
  Sex: Female
  Weight: 56.7 kg

DRUGS (12)
  1. LIPITOR [Suspect]
     Indication: BLOOD CHOLESTEROL INCREASED
     Dosage: 20 MG, DAILY
     Route: 048
     Dates: start: 20020101
  2. LIPITOR [Suspect]
     Dosage: 40 MG, ALTERNATE DAY
     Dates: start: 20100622
  3. TOPROL-XL [Concomitant]
     Dosage: 50 MG, UNK
  4. ASACOL [Concomitant]
     Dosage: 400 MG, 4X/DAY
  5. WELLBUTRIN [Concomitant]
     Dosage: 450 MG, UNK
  6. LIBRAX [Concomitant]
     Dosage: UNK, AS NEEDED
  7. HYOSCYAMINE [Concomitant]
     Indication: COLITIS ULCERATIVE
     Dosage: UNK, AS NEEDED
  8. ZANTAC [Concomitant]
     Indication: DYSPEPSIA
     Dosage: UNK, AS NEEDED
  9. FIORICET [Concomitant]
     Indication: MIGRAINE
     Dosage: UNK
  10. METHADONE [Concomitant]
     Indication: INTERVERTEBRAL DISC PROTRUSION
     Dosage: 15 MG, UNK
  11. TYLENOL [Concomitant]
     Indication: INTERVERTEBRAL DISC PROTRUSION
     Dosage: UNK, AS NEEDED
  12. CODEINE [Concomitant]
     Indication: INTERVERTEBRAL DISC PROTRUSION
     Dosage: UNK, AS NEEDED

REACTIONS (10)
  - ARTERIAL OCCLUSIVE DISEASE [None]
  - ARTHRALGIA [None]
  - ARTHROPATHY [None]
  - BACK DISORDER [None]
  - HYPERAESTHESIA [None]
  - HYPOAESTHESIA [None]
  - MUSCLE SPASMS [None]
  - PAIN IN EXTREMITY [None]
  - PARAESTHESIA [None]
  - VISION BLURRED [None]
